FAERS Safety Report 4427643-3 (Version None)
Quarter: 2004Q3

REPORT INFORMATION
  Report Type: 
  Country: None (occurrence: None)
  Receive Date: 20040817
  Receipt Date: 20040813
  Transmission Date: 20050211
  Serious: Yes (Other)
  Sender: FDA-Public Use
  Company Number: CH-MERCK-0408CHE00018

PATIENT
  Age: 63 Year
  Sex: Female

DRUGS (2)
  1. PRIMAXIN [Suspect]
     Indication: ENTEROCOCCAL INFECTION
     Route: 042
     Dates: start: 20040720
  2. MEPERIDINE HYDROCHLORIDE [Suspect]
     Indication: PAIN
     Route: 042
     Dates: start: 20040721, end: 20040728

REACTIONS (3)
  - DELIRIUM [None]
  - HALLUCINATION, AUDITORY [None]
  - HALLUCINATION, VISUAL [None]
